FAERS Safety Report 21326442 (Version 5)
Quarter: 2023Q2

REPORT INFORMATION
  Report Type: Report from Study
  Country: US (occurrence: US)
  Receive Date: 20220913
  Receipt Date: 20230626
  Transmission Date: 20230722
  Serious: No
  Sender: FDA-Public Use
  Company Number: US-NOVARTISTESTPH-NVSC2022US203526

PATIENT
  Age: 43 Year
  Sex: Male

DRUGS (1)
  1. GLATOPA [Suspect]
     Active Substance: GLATIRAMER ACETATE
     Indication: Product used for unknown indication
     Dosage: 40 MG/KG, OTHER, (INJECT 1 SYRINGE (40 MG) UNDER THE SKIN THREE TIMES A WEEK)
     Route: 065
     Dates: start: 20180911, end: 20230616

REACTIONS (2)
  - Haematoma [Unknown]
  - Needle issue [Unknown]

NARRATIVE: CASE EVENT DATE: 20230608
